FAERS Safety Report 9180176 (Version 1)
Quarter: 2012Q4

REPORT INFORMATION
  Report Type: 
  Country: JP (occurrence: JP)
  Receive Date: 20121029
  Receipt Date: 20121029
  Transmission Date: 20130627
  Serious: Yes (Other)
  Sender: FDA-Public Use
  Company Number: JP-PFIZER INC-2012266113

PATIENT
  Sex: Female

DRUGS (1)
  1. CARDENALIN [Suspect]
     Indication: BLOOD PRESSURE INCREASED
     Dosage: 2 mg, 2x/day
     Route: 048
     Dates: start: 201209

REACTIONS (6)
  - Drug ineffective [Unknown]
  - Herpes zoster [Unknown]
  - Back pain [Unknown]
  - Pain [Unknown]
  - Insomnia [Unknown]
  - Headache [Unknown]
